FAERS Safety Report 19749496 (Version 1)
Quarter: 2021Q3

REPORT INFORMATION
  Report Type: Spontaneous
  Country: US (occurrence: US)
  Receive Date: 20210825
  Receipt Date: 20210825
  Transmission Date: 20211014
  Serious: Yes (Other)
  Sender: FDA-Public Use
  Company Number: None

PATIENT
  Age: 63 Year
  Sex: Female

DRUGS (1)
  1. REGEN?COV [Suspect]
     Active Substance: CASIRIVIMAB\IMDEVIMAB
     Indication: SARS-COV-2 ANTIBODY TEST POSITIVE
     Route: 042
     Dates: start: 20210825

REACTIONS (2)
  - Chest discomfort [None]
  - Musculoskeletal discomfort [None]

NARRATIVE: CASE EVENT DATE: 20210825
